FAERS Safety Report 6044958-6 (Version None)
Quarter: 2009Q1

REPORT INFORMATION
  Report Type: 
  Country: None (occurrence: None)
  Receive Date: 20090121
  Receipt Date: 20090113
  Transmission Date: 20090719
  Serious: Yes (Other)
  Sender: FDA-Public Use
  Company Number: KR-JNJFOC-20090102283

PATIENT
  Age: 84 Year
  Sex: Female

DRUGS (2)
  1. REMINYL [Suspect]
     Dosage: 16MG, 24MG/DAY
     Route: 048
  2. REMINYL [Suspect]
     Indication: DEMENTIA
     Route: 048

REACTIONS (5)
  - INCORRECT DOSE ADMINISTERED [None]
  - NAUSEA [None]
  - OVERDOSE [None]
  - SEDATION [None]
  - VOMITING [None]
